FAERS Safety Report 9258197 (Version 2)
Quarter: 2013Q2

REPORT INFORMATION
  Report Type: Spontaneous
  Country: US (occurrence: US)
  Receive Date: 20130426
  Receipt Date: 20130604
  Transmission Date: 20140414
  Serious: Yes (Hospitalization)
  Sender: FDA-Public Use
  Company Number: US-BAYER-2013-051938

PATIENT
  Age: 31 Year
  Sex: Female
  Weight: 94 kg

DRUGS (3)
  1. YAZ [Suspect]
     Dosage: UNK
     Dates: start: 200902
  2. IBUPROFEN [Concomitant]
     Dosage: UNK
     Dates: start: 20090713
  3. VICODIN [Concomitant]

REACTIONS (9)
  - Deep vein thrombosis [None]
  - Vascular rupture [None]
  - Cardiovascular disorder [None]
  - Injury [None]
  - Pain [None]
  - General physical health deterioration [None]
  - Emotional distress [None]
  - Anxiety [None]
  - Pain [None]
